FAERS Safety Report 17217069 (Version 1)
Quarter: 2019Q4

REPORT INFORMATION
  Report Type: Spontaneous
  Country: CN (occurrence: CN)
  Receive Date: 20191231
  Receipt Date: 20191231
  Transmission Date: 20200122
  Serious: Yes (Other)
  Sender: FDA-Public Use
  Company Number: CN-ROCHE-2502603

PATIENT
  Age: 56 Year
  Sex: Female

DRUGS (17)
  1. PERJETA [Suspect]
     Active Substance: PERTUZUMAB
     Indication: BREAST CANCER
     Dosage: FIRST 840 MG THEN 420 MG
     Route: 041
     Dates: start: 20190410
  2. HERCEPTIN [Suspect]
     Active Substance: TRASTUZUMAB
     Dosage: FIRST 536MG THEN 402MG
     Route: 041
     Dates: start: 20190410
  3. CYCLOPHOSPHAMIDE. [Concomitant]
     Active Substance: CYCLOPHOSPHAMIDE
     Indication: BREAST CANCER
     Route: 041
     Dates: start: 20080102
  4. TAMOXIFEN [Concomitant]
     Active Substance: TAMOXIFEN
     Route: 065
     Dates: start: 20080101
  5. HERCEPTIN [Suspect]
     Active Substance: TRASTUZUMAB
     Route: 041
     Dates: start: 20170301
  6. EPIRUBICIN [Concomitant]
     Active Substance: EPIRUBICIN
     Route: 065
     Dates: start: 20120516
  7. PACLITAXEL. [Concomitant]
     Active Substance: PACLITAXEL
     Route: 065
     Dates: start: 20120606
  8. DOCETAXEL. [Concomitant]
     Active Substance: DOCETAXEL
     Indication: BREAST CANCER
     Route: 065
     Dates: start: 20180705
  9. EPIRUBICIN [Concomitant]
     Active Substance: EPIRUBICIN
     Indication: BREAST CANCER
     Dosage: 60MG DAY1; 70MG DAY2
     Route: 041
     Dates: start: 20080102
  10. ANASTROZOLE. [Concomitant]
     Active Substance: ANASTROZOLE
  11. CISPLATIN. [Concomitant]
     Active Substance: CISPLATIN
     Indication: BREAST CANCER
     Route: 065
     Dates: start: 20120616
  12. GEMCITABINE. [Concomitant]
     Active Substance: GEMCITABINE
     Indication: BREAST CANCER
     Route: 065
     Dates: start: 20180101
  13. EXEMESTANE. [Concomitant]
     Active Substance: EXEMESTANE
     Route: 065
     Dates: start: 20130601
  14. XELODA [Suspect]
     Active Substance: CAPECITABINE
     Indication: BREAST CANCER
     Route: 048
     Dates: start: 20141101
  15. HERCEPTIN [Suspect]
     Active Substance: TRASTUZUMAB
     Indication: BREAST CANCER
     Dosage: FIRST 544MG THEN 408MG
     Route: 041
     Dates: start: 20080409
  16. HERCEPTIN [Suspect]
     Active Substance: TRASTUZUMAB
     Route: 041
     Dates: start: 20120515
  17. PACLITAXEL. [Concomitant]
     Active Substance: PACLITAXEL
     Indication: BREAST CANCER
     Route: 065
     Dates: start: 20080409

REACTIONS (9)
  - Spinal osteoarthritis [Unknown]
  - Palpitations [Unknown]
  - Uterine leiomyoma [Unknown]
  - Nasal turbinate hypertrophy [Unknown]
  - Pneumonitis [Unknown]
  - Ovarian cyst [Unknown]
  - Cholelithiasis [Unknown]
  - Palmar-plantar erythrodysaesthesia syndrome [Unknown]
  - Ejection fraction decreased [Unknown]

NARRATIVE: CASE EVENT DATE: 201504
